FAERS Safety Report 20385429 (Version 2)
Quarter: 2022Q2

REPORT INFORMATION
  Report Type: Spontaneous
  Country: NL (occurrence: NL)
  Receive Date: 20220127
  Receipt Date: 20220412
  Transmission Date: 20220721
  Serious: Yes (Other)
  Sender: FDA-Public Use
  Company Number: NL-PFIZER INC-202200144921

PATIENT
  Age: 29 Year
  Sex: Male
  Weight: 57 kg

DRUGS (2)
  1. INFLIXIMAB [Suspect]
     Active Substance: INFLIXIMAB
     Indication: Crohn^s disease
     Dosage: 375 MG, (ONCE EVERY 8 WEEKS)
     Route: 042
     Dates: start: 20210122
  2. INFLIXIMAB [Suspect]
     Active Substance: INFLIXIMAB
     Dosage: 375 MG, (ONCE EVERY 6 WEEKS)
     Route: 042
     Dates: start: 20210520, end: 20220111

REACTIONS (2)
  - Crohn^s disease [Unknown]
  - Therapeutic response changed [Unknown]
